FAERS Safety Report 14547362 (Version 1)
Quarter: 2018Q1

REPORT INFORMATION
  Report Type: Spontaneous
  Country: IE (occurrence: IE)
  Receive Date: 20180219
  Receipt Date: 20180219
  Transmission Date: 20180509
  Serious: Yes (Death, Life-Threatening, Other)
  Sender: FDA-Public Use
  Company Number: IE-BAYER-2018-027244

PATIENT
  Age: 69 Year
  Sex: Male

DRUGS (4)
  1. SULFASALAZINE. [Concomitant]
     Active Substance: SULFASALAZINE
  2. BUDESONIDE. [Concomitant]
     Active Substance: BUDESONIDE
  3. CLADRIBINE. [Concomitant]
     Active Substance: CLADRIBINE
  4. ACETYLSALICYLIC ACID({=100 MG) [Suspect]
     Active Substance: ASPIRIN
     Dosage: UNK

REACTIONS (3)
  - Upper gastrointestinal haemorrhage [None]
  - Sepsis [Fatal]
  - Multiple organ dysfunction syndrome [Fatal]
